FAERS Safety Report 24942590 (Version 2)
Quarter: 2025Q1

REPORT INFORMATION
  Report Type: Spontaneous
  Country: US (occurrence: US)
  Receive Date: 20250207
  Receipt Date: 20250313
  Transmission Date: 20250408
  Serious: Yes (Other)
  Sender: BAYER HEALTHCARE PHARMACEUTICALS INC.
  Company Number: US-BAYER-2025A013006

PATIENT
  Age: 27 Year
  Sex: Female

DRUGS (3)
  1. MIRENA [Suspect]
     Active Substance: LEVONORGESTREL
     Indication: Contraception
     Dosage: 20?G/DAY
     Route: 015
     Dates: start: 20220126, end: 20250228
  2. ACETAZOLAMIDE [Concomitant]
     Active Substance: ACETAZOLAMIDE
     Indication: Idiopathic intracranial hypertension
     Dates: start: 20240317
  3. Otc I [Concomitant]

REACTIONS (6)
  - Idiopathic intracranial hypertension [Not Recovered/Not Resolved]
  - Papilloedema [None]
  - Pelvic pain [Recovered/Resolved]
  - Hypomenorrhoea [None]
  - Headache [Not Recovered/Not Resolved]
  - Abdominal pain [None]

NARRATIVE: CASE EVENT DATE: 20240101
